FAERS Safety Report 6715098-5 (Version None)
Quarter: 2010Q2

REPORT INFORMATION
  Report Type: 
  Country: None (occurrence: None)
  Receive Date: 20100507
  Receipt Date: 20100428
  Transmission Date: 20101027
  Serious: Yes (Other)
  Sender: FDA-Public Use
  Company Number: US-JNJFOC-20100408136

PATIENT
  Sex: Male
  Weight: 27.22 kg

DRUGS (4)
  1. RISPERDAL [Suspect]
     Indication: AUTISM
     Dosage: 1 1/2 TABLET OF 0.25 MG IN THE MORNING AND 2 TABLETS OF 0.25 MG IN THE AFTER NOON
     Route: 048
  2. NASONEX [Concomitant]
     Indication: SEASONAL ALLERGY
     Route: 045
  3. PULMICORT [Concomitant]
     Indication: ASTHMA
     Route: 048
  4. ZOLOFT [Concomitant]
     Indication: AUTISM
     Route: 048

REACTIONS (5)
  - DRUG INEFFECTIVE [None]
  - MILK ALLERGY [None]
  - OBSESSIVE-COMPULSIVE DISORDER [None]
  - SELF INJURIOUS BEHAVIOUR [None]
  - WRONG TECHNIQUE IN DRUG USAGE PROCESS [None]
